FAERS Safety Report 8048261-4 (Version None)
Quarter: 2012Q1

REPORT INFORMATION
  Report Type: 
  Country: None (occurrence: None)
  Receive Date: 20120117
  Receipt Date: 20120111
  Transmission Date: 20120608
  Serious: Yes (Hospitalization)
  Sender: FDA-Public Use
  Company Number: FR-GENZYME-FLUD-1001418

PATIENT
  Age: 77 Year
  Sex: Female

DRUGS (6)
  1. FLUDARA [Suspect]
     Indication: CHRONIC LYMPHOCYTIC LEUKAEMIA
     Dosage: 50 MG, UNK
     Route: 042
  2. CYCLOPHOSPHAMIDE [Concomitant]
     Indication: CHRONIC LYMPHOCYTIC LEUKAEMIA
     Dosage: UNK
     Route: 065
     Dates: end: 20110426
  3. FLUDARA [Suspect]
     Dosage: 50 MG, UNK
     Route: 042
  4. FLUDARA [Suspect]
     Dosage: 50 MG, UNK
     Route: 042
     Dates: start: 20110426, end: 20110426
  5. FLUDARA [Suspect]
     Dosage: 50 MG, UNK
     Route: 042
  6. MABTHERA [Concomitant]
     Indication: CHRONIC LYMPHOCYTIC LEUKAEMIA
     Dosage: UNK
     Route: 065
     Dates: start: 20110803

REACTIONS (4)
  - NEPHROTIC SYNDROME [None]
  - HAEMATURIA [None]
  - THROMBOTIC MICROANGIOPATHY [None]
  - RENAL FAILURE ACUTE [None]
